FAERS Safety Report 20666858 (Version 2)
Quarter: 2022Q2

REPORT INFORMATION
  Report Type: Spontaneous
  Country: US (occurrence: US)
  Receive Date: 20220403
  Receipt Date: 20220411
  Transmission Date: 20220721
  Serious: No
  Sender: FDA-Public Use
  Company Number: US-AMGEN-USASP2022053455

PATIENT
  Age: 53 Year
  Sex: Female
  Weight: 81.179 kg

DRUGS (19)
  1. AIMOVIG [Suspect]
     Active Substance: ERENUMAB-AOOE
     Indication: Migraine with aura
     Dosage: 140 MILLIGRAM, QMO
     Route: 058
     Dates: start: 20220307
  2. ACETAMINOPHEN [Concomitant]
     Active Substance: ACETAMINOPHEN
     Dosage: 500 MILLIGRAM
     Route: 048
     Dates: start: 20211220
  3. ELAVIL [Concomitant]
     Active Substance: AMITRIPTYLINE HYDROCHLORIDE
     Indication: Sleep disorder
     Dosage: 75 MILLIGRAM, QD
     Route: 048
     Dates: start: 20211220
  4. LIPITOR [Concomitant]
     Active Substance: ATORVASTATIN CALCIUM
     Dosage: 40 MILLIGRAM, QD
     Route: 048
     Dates: start: 20211101
  5. CALCIUM [Concomitant]
     Active Substance: CALCIUM
     Dosage: UNK (THREE TABLETS BY MOUTH IN DAY)
     Route: 048
  6. VITAMIN D3 [Concomitant]
     Active Substance: CHOLECALCIFEROL
     Dosage: 1000 UNIT
  7. EPIPEN [Concomitant]
     Active Substance: EPINEPHRINE
     Indication: Anaphylactic reaction
     Dosage: 0.3 MILLIGRAM, AS NECESSARY
     Route: 030
     Dates: start: 20200428, end: 20220320
  8. NEURONTIN [Concomitant]
     Active Substance: GABAPENTIN
     Dosage: 300 MILLIGRAM, TID
     Route: 048
     Dates: start: 20220110
  9. EMGALITY [Concomitant]
     Active Substance: GALCANEZUMAB-GNLM
     Dosage: 120 MILLIGRAM, QMO
  10. ATARAX [Concomitant]
     Active Substance: HYDROXYZINE HYDROCHLORIDE
     Indication: Pruritus
     Dosage: 25 MILLIGRAM, AS NECESSARY
     Route: 048
  11. MELATIN [Concomitant]
     Dosage: 3 MILLIGRAM, QD
     Route: 048
     Dates: start: 20211223
  12. MOBIC [Concomitant]
     Active Substance: MELOXICAM
     Dosage: 15 MILLIGRAM, QD
     Route: 048
     Dates: start: 20220127
  13. ZYPREXA [Concomitant]
     Active Substance: OLANZAPINE
     Dosage: 10 MILLIGRAM, QD
     Route: 048
     Dates: start: 20211222
  14. MAXALT-MLT [Concomitant]
     Active Substance: RIZATRIPTAN BENZOATE
     Indication: Headache
     Dosage: 10 MILLIGRAM
  15. LACIDIPINE [Concomitant]
     Active Substance: LACIDIPINE
     Dosage: UNK
  16. TOPAMAX [Concomitant]
     Active Substance: TOPIRAMATE
     Dosage: 50 MILLIGRAM, QD
     Route: 048
     Dates: start: 20220307
  17. RELPAX [Concomitant]
     Active Substance: ELETRIPTAN HYDROBROMIDE
     Indication: Headache
     Dosage: 40 MILLIGRAM
     Route: 048
     Dates: start: 20220307
  18. RELPAX [Concomitant]
     Active Substance: ELETRIPTAN HYDROBROMIDE
     Indication: Neck pain
  19. RELPAX [Concomitant]
     Active Substance: ELETRIPTAN HYDROBROMIDE
     Indication: Migraine without aura

REACTIONS (3)
  - Therapeutic product effect incomplete [Unknown]
  - Device difficult to use [Unknown]
  - Wrong technique in product usage process [Unknown]

NARRATIVE: CASE EVENT DATE: 20220101
